FAERS Safety Report 10854688 (Version 1)
Quarter: 2015Q1

REPORT INFORMATION
  Report Type: Spontaneous
  Country: CA (occurrence: None)
  Receive Date: 20150218
  Receipt Date: 20150218
  Transmission Date: 20150721
  Serious: Yes (Other)
  Sender: FDA-Public Use
  Company Number: 2015FE00445

PATIENT
  Age: 80 Year
  Sex: Male

DRUGS (3)
  1. IBUPROFEN (IBUPROFEN) [Concomitant]
     Active Substance: IBUPROFEN
  2. FIRMAGON [Suspect]
     Active Substance: DEGARELIX ACETATE
     Indication: PROSTATE CANCER
  3. METAMUCIL (PLANTAGO OVATA) [Concomitant]

REACTIONS (5)
  - Asthenia [None]
  - Arthralgia [None]
  - Ageusia [None]
  - Constipation [None]
  - Chills [None]
